FAERS Safety Report 17271510 (Version 2)
Quarter: 2020Q1

REPORT INFORMATION
  Report Type: Spontaneous
  Country: HU (occurrence: HU)
  Receive Date: 20200115
  Receipt Date: 20200131
  Transmission Date: 20200409
  Serious: Yes (Other)
  Sender: FDA-Public Use
  Company Number: HU-TEVA-2020-HU-1168464

PATIENT
  Age: 29 Year
  Sex: Female

DRUGS (4)
  1. AMPICILLIN [Suspect]
     Active Substance: AMPICILLIN
     Indication: INFLAMMATORY MARKER TEST
     Dosage: 4 GRAM DAILY;
     Route: 042
  2. DEXAMETHASONE. [Suspect]
     Active Substance: DEXAMETHASONE
     Indication: NEONATAL RESPIRATORY DISTRESS SYNDROME PROPHYLAXIS
     Route: 065
  3. ATOSIBAN [Suspect]
     Active Substance: ATOSIBAN
     Indication: TOCOLYSIS
     Dosage: 6.75 MILLIGRAM DAILY;
     Route: 065
  4. ATOSIBAN [Suspect]
     Active Substance: ATOSIBAN
     Dosage: 37.5 MILLIGRAM DAILY;

REACTIONS (5)
  - Haemorrhage in pregnancy [Recovered/Resolved]
  - Maternal exposure during pregnancy [Unknown]
  - Premature rupture of membranes [Recovered/Resolved]
  - Live birth [Unknown]
  - Premature separation of placenta [Recovered/Resolved]
